FAERS Safety Report 5612335-5 (Version None)
Quarter: 2008Q1

REPORT INFORMATION
  Report Type: 
  Country: None (occurrence: None)
  Receive Date: 20080131
  Receipt Date: 20080131
  Transmission Date: 20080703
  Serious: Yes (Death)
  Sender: FDA-Public Use
  Company Number: None

PATIENT
  Age: 56 Year
  Sex: Female
  Weight: 83.0083 kg

DRUGS (1)
  1. HEPARIN [Suspect]
     Indication: PREOPERATIVE CARE
     Dosage: IM
     Route: 030
     Dates: start: 20080111, end: 20080111

REACTIONS (1)
  - PULMONARY EMBOLISM [None]
